FAERS Safety Report 8377651-5 (Version None)
Quarter: 2012Q2

REPORT INFORMATION
  Report Type: 
  Country: None (occurrence: None)
  Receive Date: 20120522
  Receipt Date: 20120510
  Transmission Date: 20120825
  Serious: Yes (Other)
  Sender: FDA-Public Use
  Company Number: JP-JNJFOC-20120302156

PATIENT
  Sex: Female

DRUGS (11)
  1. PHENOBARBITAL TAB [Concomitant]
     Route: 048
     Dates: start: 20090107
  2. GABAPENTIN [Concomitant]
     Route: 048
     Dates: start: 20090107, end: 20090219
  3. PHENOBARBITAL TAB [Concomitant]
     Route: 048
     Dates: start: 20000101, end: 20090106
  4. GABAPENTIN [Concomitant]
     Route: 048
     Dates: start: 20090220, end: 20100812
  5. TOPIRAMATE [Suspect]
     Indication: EPILEPSY
     Route: 048
     Dates: start: 20080711
  6. PHENYTOIN SODIUM CAP [Suspect]
     Indication: EPILEPSY
     Route: 048
  7. PHENYTOIN SODIUM CAP [Suspect]
     Route: 048
     Dates: start: 20050101
  8. TEGRETOL [Concomitant]
     Route: 048
     Dates: start: 20000101, end: 20040101
  9. ZONISAMIDE [Concomitant]
     Route: 048
     Dates: start: 20080101, end: 20090201
  10. ZONISAMIDE [Concomitant]
     Route: 048
     Dates: start: 20040101, end: 20080101
  11. TEGRETOL [Concomitant]
     Route: 048
     Dates: start: 20040101, end: 20090201

REACTIONS (1)
  - CYANOSIS [None]
